FAERS Safety Report 24339780 (Version 2)
Quarter: 2024Q3

REPORT INFORMATION
  Report Type: Spontaneous
  Country: ZA (occurrence: ZA)
  Receive Date: 20240919
  Receipt Date: 20240927
  Transmission Date: 20241017
  Serious: No
  Sender: BAYER
  Company Number: ZA-BAYER-2024A133237

PATIENT
  Age: 52 Year
  Sex: Female

DRUGS (1)
  1. ULTRAVIST [Suspect]
     Active Substance: IOPROMIDE
     Dosage: UNK

REACTIONS (1)
  - Urticaria [None]

NARRATIVE: CASE EVENT DATE: 20240909
